FAERS Safety Report 9372014 (Version 1)
Quarter: 2013Q2

REPORT INFORMATION
  Report Type: Report from Study
  Country: US (occurrence: US)
  Receive Date: 20130627
  Receipt Date: 20130627
  Transmission Date: 20140414
  Serious: Yes (Death)
  Sender: FDA-Public Use
  Company Number: US-MYLANLABS-2012S1012739

PATIENT
  Age: 53 Year
  Sex: Male

DRUGS (11)
  1. CLOZAPINE TABLETS [Suspect]
     Dates: start: 200102, end: 201205
  2. GABAPENTIN [Concomitant]
     Dosage: THERAPY STARTED PRIOR TO JAN-2008
     Dates: end: 201205
  3. INVEGA SUSTENNA [Concomitant]
     Dates: start: 20100114, end: 201205
  4. FERROUS SULFATE [Concomitant]
  5. THERAPEUTIC-M [Concomitant]
  6. KEPPRA [Concomitant]
  7. PULMICORT [Concomitant]
  8. MIRALAX /00754501/ [Concomitant]
  9. DUONEB [Concomitant]
  10. ASA [Concomitant]
  11. OMEPRAZOLE [Concomitant]

REACTIONS (1)
  - Neoplasm malignant [Fatal]
